FAERS Safety Report 4749905-2 (Version None)
Quarter: 2005Q3

REPORT INFORMATION
  Report Type: 
  Country: None (occurrence: None)
  Receive Date: 20050822
  Receipt Date: 20050804
  Transmission Date: 20060218
  Serious: Yes (Hospitalization)
  Sender: FDA-Public Use
  Company Number: 2005-BP-13418RO

PATIENT
  Age: 28 Year
  Sex: Male

DRUGS (1)
  1. HYDROXYUREA [Suspect]
     Indication: SICKLE CELL ANAEMIA

REACTIONS (7)
  - ACUTE MYOCARDIAL INFARCTION [None]
  - BLOOD VISCOSITY INCREASED [None]
  - FOETAL HAEMOGLOBIN INCREASED [None]
  - HAEMATOCRIT INCREASED [None]
  - HAEMOGLOBIN ABNORMAL [None]
  - MEAN CELL VOLUME INCREASED [None]
  - VENTRICULAR DYSFUNCTION [None]
